FAERS Safety Report 7020169-2 (Version None)
Quarter: 2010Q3

REPORT INFORMATION
  Report Type: 
  Country: None (occurrence: None)
  Receive Date: 20100929
  Receipt Date: 20100921
  Transmission Date: 20110219
  Serious: Yes (Other)
  Sender: FDA-Public Use
  Company Number: GB-BAYER-201022144GPV

PATIENT
  Sex: Male

DRUGS (3)
  1. FLUDARABINE [Suspect]
     Indication: PRODUCT USED FOR UNKNOWN INDICATION
  2. CYCLOPHOSPHAMIDE [Suspect]
     Indication: PRODUCT USED FOR UNKNOWN INDICATION
  3. RITUXIMAB [Suspect]
     Indication: PRODUCT USED FOR UNKNOWN INDICATION

REACTIONS (2)
  - ANAPHYLACTIC SHOCK [None]
  - CHEST PAIN [None]
